FAERS Safety Report 6344302-0 (Version None)
Quarter: 2009Q3

REPORT INFORMATION
  Report Type: 
  Country: None (occurrence: None)
  Receive Date: 20090903
  Receipt Date: 20090817
  Transmission Date: 20100115
  Serious: Yes (Death, Hospitalization)
  Sender: FDA-Public Use
  Company Number: 2009AL001743

PATIENT
  Age: 90 Year
  Sex: Female

DRUGS (30)
  1. DIGOXIN [Suspect]
     Dosage: 0.125MG, DAILY, PO
     Route: 048
     Dates: end: 20080301
  2. LORCET-HD [Concomitant]
  3. NAPROXEN [Concomitant]
  4. POLYSACCHARIDE [Concomitant]
  5. CYANOCOBALAMIN [Concomitant]
  6. FUROSEMIDE [Concomitant]
  7. KLOR-CON [Concomitant]
  8. METRONIDAZOLE [Concomitant]
  9. LEVAQUIN [Concomitant]
  10. SULAR [Concomitant]
  11. PRILOSEC [Concomitant]
  12. PROMETHAZINE [Concomitant]
  13. HYDROXYZINE [Concomitant]
  14. ASPIRIN [Concomitant]
  15. TRAMADOL HCL [Concomitant]
  16. WARFARIN SODIUM [Concomitant]
  17. COREG [Concomitant]
  18. ISOSORBIDE [Concomitant]
  19. FULMO-AIDE [Concomitant]
  20. ENALAPRIL MALEATE [Concomitant]
  21. ALBUTEROL [Concomitant]
  22. TITRAMADOL [Concomitant]
  23. SPIRONOLACTONE [Concomitant]
  24. DILTIAZEM [Concomitant]
  25. AMOXICILLIN [Concomitant]
  26. LOVENOX [Concomitant]
  27. CALCIUM [Concomitant]
  28. ACETAMINOPHEN [Concomitant]
  29. ACYCLOVIR [Concomitant]
  30. ZOLPIDEM [Concomitant]

REACTIONS (7)
  - CARDIAC FAILURE CONGESTIVE [None]
  - DEHYDRATION [None]
  - ECONOMIC PROBLEM [None]
  - HYPERKALAEMIA [None]
  - INJURY [None]
  - SURGERY [None]
  - UNEVALUABLE EVENT [None]
